FAERS Safety Report 22798486 (Version 2)
Quarter: 2024Q1

REPORT INFORMATION
  Report Type: Other
  Country: CA (occurrence: None)
  Receive Date: 20230808
  Receipt Date: 20240315
  Transmission Date: 20240410
  Serious: Yes (Other)
  Sender: FDA-Public Use
  Company Number: CA-ROCHE-3400487

PATIENT
  Sex: Female

DRUGS (22)
  1. RITUXAN [Suspect]
     Active Substance: RITUXIMAB
     Indication: Granulomatosis with polyangiitis
     Route: 041
     Dates: start: 20180808, end: 20180808
  2. RITUXAN [Suspect]
     Active Substance: RITUXIMAB
     Dosage: WEEKLY FOR 4 WEEKS
     Route: 041
     Dates: start: 20190307, end: 20190328
  3. RITUXAN [Suspect]
     Active Substance: RITUXIMAB
     Route: 041
     Dates: start: 20190916
  4. ASPIRIN [Concomitant]
     Active Substance: ASPIRIN
  5. AMLODIPINE [Concomitant]
     Active Substance: AMLODIPINE BESYLATE
  6. ANORO ELLIPTA [Concomitant]
     Active Substance: UMECLIDINIUM BROMIDE\VILANTEROL TRIFENATATE
  7. APIXABAN [Concomitant]
     Active Substance: APIXABAN
     Indication: Atrial fibrillation
  8. BACTRIM [Concomitant]
     Active Substance: SULFAMETHOXAZOLE\TRIMETHOPRIM
     Dates: end: 2019
  9. BECLOMETHASONE [Concomitant]
     Active Substance: BECLOMETHASONE
  10. BENADRYL [Concomitant]
     Active Substance: DIPHENHYDRAMINE HYDROCHLORIDE
     Route: 048
  11. CALCIUM CARBONATE [Concomitant]
     Active Substance: CALCIUM CARBONATE
  12. DILTIAZEM [Concomitant]
     Active Substance: DILTIAZEM
  13. ESCITALOPRAM [Concomitant]
     Active Substance: ESCITALOPRAM OXALATE
  14. FOLIC ACID [Concomitant]
     Active Substance: FOLIC ACID
  15. FOSAMAX [Concomitant]
     Active Substance: ALENDRONATE SODIUM
  16. PEPCID [Concomitant]
     Active Substance: FAMOTIDINE
  17. PREDNISONE [Concomitant]
     Active Substance: PREDNISONE
  18. RISEDRONATE SODIUM [Concomitant]
     Active Substance: RISEDRONATE SODIUM
  19. SEPTRA [Concomitant]
     Active Substance: SULFAMETHOXAZOLE\TRIMETHOPRIM
  20. SOLU-MEDROL [Concomitant]
     Active Substance: METHYLPREDNISOLONE SODIUM SUCCINATE
     Route: 042
     Dates: start: 20200924
  21. TYLENOL [Concomitant]
     Active Substance: ACETAMINOPHEN
     Route: 048
  22. TYLENOL [Concomitant]
     Active Substance: ACETAMINOPHEN

REACTIONS (9)
  - Atrial fibrillation [Unknown]
  - Cough [Unknown]
  - Nasal congestion [Unknown]
  - Arthralgia [Unknown]
  - Arthritis [Unknown]
  - Gluten sensitivity [Unknown]
  - Drug hypersensitivity [Unknown]
  - Granulomatosis with polyangiitis [Unknown]
  - Memory impairment [Unknown]
